FAERS Safety Report 18682041 (Version 1)
Quarter: 2020Q4

REPORT INFORMATION
  Report Type: Spontaneous
  Country: US (occurrence: US)
  Receive Date: 20201230
  Receipt Date: 20201230
  Transmission Date: 20210114
  Serious: Yes (Other)
  Sender: FDA-Public Use
  Company Number: US-PFIZER INC-2020510249

PATIENT
  Age: 19 Year
  Sex: Female
  Weight: 59 kg

DRUGS (3)
  1. CARBAMAZEPINE. [Suspect]
     Active Substance: CARBAMAZEPINE
     Indication: SEIZURE
     Dosage: 200 MG HS
     Route: 048
  2. CEPHALEXIN [CEFALEXIN] [Concomitant]
     Active Substance: CEPHALEXIN
     Indication: INFECTION
     Dosage: UNK
  3. PHENYTOIN. [Suspect]
     Active Substance: PHENYTOIN
     Indication: SEIZURE
     Dosage: 100 MG, 3X/DAY
     Route: 048

REACTIONS (1)
  - Therapeutic product cross-reactivity [Recovered/Resolved]
